FAERS Safety Report 7916682-3 (Version None)
Quarter: 2011Q4

REPORT INFORMATION
  Report Type: 
  Country: None (occurrence: None)
  Receive Date: 20111116
  Receipt Date: 20111104
  Transmission Date: 20120403
  Serious: Yes (Hospitalization, Other)
  Sender: FDA-Public Use
  Company Number: US-BAYER-201036154NA

PATIENT
  Age: 26 Year
  Sex: Female

DRUGS (7)
  1. YASMIN [Suspect]
     Indication: CONTRACEPTION
     Dosage: UNK UNK, UNK
     Route: 048
     Dates: start: 20050101
  2. YASMIN [Suspect]
     Dosage: UNK
     Route: 048
     Dates: start: 20070101
  3. YAZ [Suspect]
     Dosage: UNK
     Route: 048
     Dates: start: 20070101
  4. YASMIN [Suspect]
     Dosage: UNK
     Route: 048
     Dates: start: 20070101
  5. YAZ [Suspect]
     Dosage: UNK
     Route: 048
     Dates: start: 20090101
  6. YAZ [Suspect]
     Indication: CONTRACEPTION
     Dosage: UNK
     Route: 048
     Dates: start: 20050101
  7. NUVARING [Concomitant]

REACTIONS (13)
  - ABDOMINAL DISTENSION [None]
  - DYSPEPSIA [None]
  - DIARRHOEA [None]
  - ANXIETY [None]
  - DEPRESSION [None]
  - GALLBLADDER DISORDER [None]
  - CHOLELITHIASIS [None]
  - PANCREATITIS [None]
  - SCAR [None]
  - HEPATIC FUNCTION ABNORMAL [None]
  - CONSTIPATION [None]
  - FLATULENCE [None]
  - CHOLECYSTITIS [None]
